FAERS Safety Report 8506039-9 (Version None)
Quarter: 2012Q3

REPORT INFORMATION
  Report Type: 
  Country: None (occurrence: None)
  Receive Date: 20120712
  Receipt Date: 20120705
  Transmission Date: 20120928
  Serious: Yes (Hospitalization)
  Sender: FDA-Public Use
  Company Number: GB-ROCHE-1015315

PATIENT
  Sex: Male

DRUGS (16)
  1. RANIBIZUMAB [Suspect]
     Indication: DIABETIC RETINAL OEDEMA
     Route: 050
     Dates: start: 20110217, end: 20110217
  2. ISOSORBIDE MONONITRATE [Concomitant]
     Dates: start: 20060105, end: 20120117
  3. RANIBIZUMAB [Suspect]
     Route: 050
     Dates: start: 20110519, end: 20110519
  4. ASPIRIN [Concomitant]
     Dates: start: 20110806, end: 20111030
  5. IRBESARTAN [Concomitant]
     Dates: start: 20061031, end: 20120617
  6. FUROSEMIDE [Concomitant]
     Dates: start: 20071205
  7. RANIBIZUMAB [Suspect]
     Route: 050
     Dates: start: 20110314, end: 20110314
  8. RANIBIZUMAB [Suspect]
     Route: 050
     Dates: start: 20110421, end: 20110421
  9. RANIBIZUMAB [Suspect]
     Route: 050
     Dates: start: 20110915, end: 20110915
  10. AVASTIN [Suspect]
     Indication: DIABETIC RETINAL OEDEMA
  11. METFORMIN HCL [Concomitant]
     Dates: start: 20090611, end: 20120617
  12. RANIBIZUMAB [Suspect]
     Route: 050
     Dates: start: 20110613, end: 20110613
  13. ATORVASTATIN [Concomitant]
     Dates: start: 20010330, end: 20120617
  14. DIPYRIDAMOLE [Concomitant]
     Dates: start: 20051216, end: 20111030
  15. METFORMIN HCL [Concomitant]
     Dates: start: 20040914
  16. NOVOLOG MIX 70/30 [Concomitant]
     Dates: start: 20090611, end: 20120617

REACTIONS (7)
  - INAPPROPRIATE SCHEDULE OF DRUG ADMINISTRATION [None]
  - APHASIA [None]
  - TRANSIENT ISCHAEMIC ATTACK [None]
  - CEREBROVASCULAR ACCIDENT [None]
  - CONFUSIONAL STATE [None]
  - HYPOAESTHESIA [None]
  - CONCOMITANT DISEASE PROGRESSION [None]
